FAERS Safety Report 9842953 (Version 1)
Quarter: 2013Q4

REPORT INFORMATION
  Report Type: Spontaneous
  Country: US (occurrence: None)
  Receive Date: 20131223
  Receipt Date: 20131223
  Transmission Date: 20140711
  Serious: Yes (Other)
  Sender: FDA-Public Use
  Company Number: 217267LEO

PATIENT
  Age: 52 Year
  Sex: Female
  Weight: 99.1 kg

DRUGS (3)
  1. PICATO [Suspect]
     Indication: ACTINIC KERATOSIS
     Route: 061
     Dates: start: 20120402, end: 20120404
  2. LUBRIDERM (PARAFFIN) [Concomitant]
  3. SUNSCREEN (SUNCREEN) [Concomitant]

REACTIONS (7)
  - Application site pain [None]
  - Application site pruritus [None]
  - Application site exfoliation [None]
  - Application site irritation [None]
  - Application site swelling [None]
  - Dry skin [None]
  - Drug administered at inappropriate site [None]
